FAERS Safety Report 7267964-2 (Version None)
Quarter: 2011Q1

REPORT INFORMATION
  Report Type: 
  Country: None (occurrence: None)
  Receive Date: 20110201
  Receipt Date: 20110127
  Transmission Date: 20110831
  Serious: Yes (Other)
  Sender: FDA-Public Use
  Company Number: KR-PFIZER INC-2011011228

PATIENT
  Age: 62 Year
  Sex: Male

DRUGS (1)
  1. CARDURA [Suspect]
     Indication: HYPERTENSION
     Dosage: UNK
     Route: 048

REACTIONS (3)
  - HEADACHE [None]
  - FALL [None]
  - BLOOD PRESSURE INCREASED [None]
